FAERS Safety Report 25061451 (Version 1)
Quarter: 2025Q1

REPORT INFORMATION
  Report Type: Spontaneous
  Country: US (occurrence: US)
  Receive Date: 20250311
  Receipt Date: 20250311
  Transmission Date: 20250408
  Serious: No
  Sender: TEVA
  Company Number: US-TEVA-VS-3298049

PATIENT

DRUGS (1)
  1. UZEDY [Suspect]
     Active Substance: RISPERIDONE
     Indication: Product used for unknown indication
     Route: 065

REACTIONS (4)
  - Swollen tongue [Unknown]
  - Jaw disorder [Unknown]
  - Protrusion tongue [Unknown]
  - Extrapyramidal disorder [Unknown]
